FAERS Safety Report 8578915-2 (Version None)
Quarter: 2012Q3

REPORT INFORMATION
  Report Type: 
  Country: None (occurrence: None)
  Receive Date: 20120808
  Receipt Date: 20120731
  Transmission Date: 20120928
  Serious: Yes (Hospitalization)
  Sender: FDA-Public Use
  Company Number: US-VERTEX PHARMACEUTICALS INC.-AE-2012-010379

PATIENT
  Sex: Female
  Weight: 113 kg

DRUGS (7)
  1. INCIVEK [Suspect]
     Indication: HEPATITIS C
     Route: 048
     Dates: start: 20120628, end: 20120702
  2. PEGASYS [Concomitant]
     Indication: HEPATITIS C
     Dates: start: 20120628, end: 20120702
  3. THIAZIDE DIURETIC [Concomitant]
     Indication: HYPERTENSION
  4. ZOLOFT [Concomitant]
     Route: 048
  5. MAXZIDE [Concomitant]
     Route: 048
  6. RIBAVIRIN [Concomitant]
     Indication: HEPATITIS C
     Route: 048
     Dates: start: 20120628, end: 20120702
  7. SYNTHROID [Concomitant]
     Route: 048

REACTIONS (6)
  - GASTROOESOPHAGEAL REFLUX DISEASE [None]
  - CONSTIPATION [None]
  - HICCUPS [None]
  - LOSS OF CONSCIOUSNESS [None]
  - BLOOD SODIUM DECREASED [None]
  - VOMITING [None]
